FAERS Safety Report 9565557 (Version 3)
Quarter: 2013Q4

REPORT INFORMATION
  Report Type: Report from Study
  Country: US (occurrence: US)
  Receive Date: 20130930
  Receipt Date: 20131010
  Transmission Date: 20140711
  Serious: Yes (Congenital Anomaly)
  Sender: FDA-Public Use
  Company Number: US-MYLANLABS-2013S1021436

PATIENT
  Sex: 0

DRUGS (6)
  1. DARUNAVIR [Suspect]
     Route: 064
  2. FOSAMPRENAVIR CALCIUM [Suspect]
     Route: 064
  3. ZIDOVUDINE [Suspect]
     Route: 064
  4. LAMIVUDINE/ZIDOVUDINE [Suspect]
     Route: 064
  5. RITONAVIR [Suspect]
     Route: 064
  6. TENOFOVIR DISOPROXIL FUMARATE [Suspect]
     Route: 064

REACTIONS (2)
  - Micrognathia [Not Recovered/Not Resolved]
  - Foetal exposure during pregnancy [Recovered/Resolved]
